FAERS Safety Report 10159229 (Version 2)
Quarter: 2014Q2

REPORT INFORMATION
  Report Type: Report from Study
  Country: CA (occurrence: CA)
  Receive Date: 20140508
  Receipt Date: 20140515
  Transmission Date: 20141212
  Serious: Yes (Hospitalization)
  Sender: FDA-Public Use
  Company Number: CA-ROCHE-1388516

PATIENT
  Age: 53 Year
  Sex: Female

DRUGS (8)
  1. HERCEPTIN [Suspect]
     Indication: BREAST CANCER
     Route: 042
     Dates: start: 20120215
  2. PERJETA [Suspect]
     Indication: BREAST CANCER METASTATIC
     Route: 042
     Dates: start: 20140403
  3. TAXOTERE [Suspect]
     Indication: BREAST CANCER
     Route: 065
     Dates: start: 20111215
  4. HYDROMORPHONE [Concomitant]
  5. ATIVAN [Concomitant]
  6. LYRICA [Concomitant]
  7. LEVOTHYROXINE [Concomitant]
  8. DEXAMETHASONE [Concomitant]

REACTIONS (4)
  - Febrile neutropenia [Recovered/Resolved]
  - Malignant neoplasm progression [Not Recovered/Not Resolved]
  - Blood iron decreased [Not Recovered/Not Resolved]
  - Ageusia [Not Recovered/Not Resolved]
